FAERS Safety Report 11381452 (Version 1)
Quarter: 2015Q3

REPORT INFORMATION
  Report Type: Spontaneous
  Country: AU (occurrence: AU)
  Receive Date: 20150814
  Receipt Date: 20150814
  Transmission Date: 20151125
  Serious: Yes (Death)
  Sender: FDA-Public Use
  Company Number: AU-CELGENE-AUS-2015082132

PATIENT
  Sex: Male

DRUGS (1)
  1. ISTODAX [Suspect]
     Active Substance: ROMIDEPSIN
     Indication: PERIPHERAL T-CELL LYMPHOMA UNSPECIFIED
     Route: 065

REACTIONS (1)
  - Peripheral T-cell lymphoma unspecified [Fatal]
